FAERS Safety Report 6595180-6 (Version None)
Quarter: 2010Q1

REPORT INFORMATION
  Report Type: 
  Country: None (occurrence: None)
  Receive Date: 20100205
  Receipt Date: 20100126
  Transmission Date: 20100710
  Serious: Yes (Hospitalization)
  Sender: FDA-Public Use
  Company Number: 2010SP005920

PATIENT
  Age: 47 Year
  Sex: Male
  Weight: 101.1521 kg

DRUGS (2)
  1. RIBAVIRIN [Suspect]
     Indication: HEPATITIS C
     Dosage: PO
     Route: 048
     Dates: start: 20080101
  2. PEGASYS [Suspect]
     Indication: HEPATITIS C
     Dates: start: 20080101

REACTIONS (3)
  - ANAEMIA [None]
  - LOSS OF CONSCIOUSNESS [None]
  - WEIGHT DECREASED [None]
